FAERS Safety Report 9996416 (Version 3)
Quarter: 2014Q4

REPORT INFORMATION
  Report Type: Spontaneous
  Country: US (occurrence: US)
  Receive Date: 20140311
  Receipt Date: 20141117
  Transmission Date: 20150529
  Serious: Yes (Hospitalization)
  Sender: FDA-Public Use
  Company Number: US-BAYER-2014-036155

PATIENT
  Age: 26 Year
  Sex: Female
  Weight: 61.22 kg

DRUGS (4)
  1. YAZ [Suspect]
     Active Substance: DROSPIRENONE\ETHINYL ESTRADIOL
     Dosage: UNK
     Dates: start: 200703, end: 200709
  2. METRONIDAZOLE. [Concomitant]
     Active Substance: METRONIDAZOLE
     Dosage: UNK
     Route: 067
     Dates: start: 20070830
  3. VICODIN [Concomitant]
     Active Substance: ACETAMINOPHEN\HYDROCODONE BITARTRATE
  4. IBUPROFEN. [Concomitant]
     Active Substance: IBUPROFEN
     Indication: PAIN
     Dosage: 600 MG EVERY 6 HOURS

REACTIONS (9)
  - Pelvic venous thrombosis [Recovering/Resolving]
  - Abdominal pain [None]
  - Peripheral swelling [None]
  - General physical health deterioration [None]
  - Thrombosis [None]
  - Injury [None]
  - Pain [None]
  - Deep vein thrombosis [Recovering/Resolving]
  - Capillary disorder [None]

NARRATIVE: CASE EVENT DATE: 200709
